FAERS Safety Report 20501869 (Version 1)
Quarter: 2022Q1

REPORT INFORMATION
  Report Type: Spontaneous
  Country: US (occurrence: None)
  Receive Date: 20220221
  Receipt Date: 20220221
  Transmission Date: 20220423
  Serious: Yes (Hospitalization)
  Sender: FDA-Public Use
  Company Number: None

PATIENT
  Age: 60 Year
  Sex: Male

DRUGS (1)
  1. COSENTYX [Suspect]
     Active Substance: SECUKINUMAB
     Indication: Psoriatic arthropathy
     Dates: start: 20211116

REACTIONS (5)
  - Flushing [None]
  - Influenza [None]
  - Hypertension [None]
  - Palpitations [None]
  - Hypersensitivity [None]

NARRATIVE: CASE EVENT DATE: 20220201
